FAERS Safety Report 9752989 (Version 2)
Quarter: 2013Q4

REPORT INFORMATION
  Report Type: Spontaneous
  Country: FR (occurrence: FR)
  Receive Date: 20131213
  Receipt Date: 20131223
  Transmission Date: 20140711
  Serious: Yes (Hospitalization, Other)
  Sender: FDA-Public Use
  Company Number: FR-PFIZER INC-2013351796

PATIENT
  Age: 73 Year
  Sex: Male

DRUGS (15)
  1. ADVIL [Suspect]
     Dosage: 200 MG, 1X/DAY
     Route: 048
     Dates: start: 20130702, end: 20130708
  2. PIROXICAM [Suspect]
     Dosage: 20 MG, 2X/DAY
     Route: 030
     Dates: start: 20130703, end: 20130708
  3. BURINEX [Suspect]
     Dosage: 5 MG, 1X/DAY
     Route: 048
     Dates: start: 20130619, end: 20130708
  4. ALTEISDUO [Suspect]
     Indication: HYPERTENSION
     Dosage: 1 DF (25 MG/20 MG ), DAILY
     Route: 048
     Dates: start: 20130619, end: 20130708
  5. METOPROLOL [Concomitant]
     Route: 048
  6. KALEORID LP [Concomitant]
     Dosage: 600 MG,1 IN 1 D
  7. HALDOL FAIBLE [Concomitant]
     Dosage: 20 DROPS IN THE EVENING, 1X/DAY
     Route: 048
  8. BETAHISTINE DIHYDROCHLORIDE [Concomitant]
     Dosage: UNK
     Dates: start: 20130702
  9. ALLOPURINOL [Concomitant]
     Dosage: 200
     Route: 048
     Dates: start: 20130702
  10. INEXIUM [Concomitant]
     Dosage: 20 MG,1 IN 1 D
     Route: 048
     Dates: start: 20130702
  11. BEFIZAL [Concomitant]
     Dosage: 800 MG,1 IN 1 D
     Route: 048
     Dates: start: 20130702
  12. SMECTA [Concomitant]
     Dosage: IF NEEDED
     Route: 048
     Dates: start: 20130702
  13. VOLTAREN EMULGEL [Concomitant]
     Dosage: UNK
     Route: 061
     Dates: start: 20130702
  14. MIOREL [Concomitant]
     Dosage: 4 MG,1 IN 1 D
     Route: 048
     Dates: start: 20130703
  15. MONOCRIXO LP [Concomitant]
     Dosage: 100 MG,1 IN 1 D
     Route: 048
     Dates: start: 20130703

REACTIONS (4)
  - Renal failure acute [Recovered/Resolved]
  - Renal tubular disorder [Recovered/Resolved]
  - Hypoxia [Recovered/Resolved]
  - Hypotension [Recovered/Resolved]
